FAERS Safety Report 8374972-7 (Version None)
Quarter: 2012Q2

REPORT INFORMATION
  Report Type: 
  Country: None (occurrence: None)
  Receive Date: 20120521
  Receipt Date: 20120515
  Transmission Date: 20120825
  Serious: No
  Sender: FDA-Public Use
  Company Number: US-ASTRAZENECA-2012SE31309

PATIENT
  Sex: Female

DRUGS (1)
  1. SEROQUEL XR [Suspect]
     Route: 048

REACTIONS (5)
  - POST-TRAUMATIC STRESS DISORDER [None]
  - INTENTIONAL DRUG MISUSE [None]
  - BIPOLAR DISORDER [None]
  - HALLUCINATION, AUDITORY [None]
  - ATTENTION DEFICIT/HYPERACTIVITY DISORDER [None]
